FAERS Safety Report 17229614 (Version 9)
Quarter: 2024Q1

REPORT INFORMATION
  Report Type: Report from Study
  Country: BR (occurrence: BR)
  Receive Date: 20200103
  Receipt Date: 20240306
  Transmission Date: 20240410
  Serious: Yes (Other)
  Sender: FDA-Public Use
  Company Number: BR-IPSEN GROUP, RESEARCH AND DEVELOPMENT-2019-16935

PATIENT
  Age: 84 Year
  Sex: Female
  Weight: 80 kg

DRUGS (9)
  1. LANREOTIDE ACETATE [Suspect]
     Active Substance: LANREOTIDE ACETATE
     Indication: Acromegaly
     Route: 058
     Dates: start: 2015
  2. LANREOTIDE ACETATE [Suspect]
     Active Substance: LANREOTIDE ACETATE
     Route: 058
     Dates: start: 201412
  3. LANREOTIDE ACETATE [Suspect]
     Active Substance: LANREOTIDE ACETATE
     Route: 065
  4. ALPRAZOLAM [Concomitant]
     Active Substance: ALPRAZOLAM
     Indication: Anxiety
     Dosage: 3 MONTHS AGO (QD)
     Route: 048
  5. PREGABALIN [Concomitant]
     Active Substance: PREGABALIN
     Indication: Anxiety
     Dosage: 3 MONTHS AGO (QD)
     Route: 048
  6. CINNARIZINE [Concomitant]
     Active Substance: CINNARIZINE
     Indication: Hearing aid therapy
     Dosage: MORE THAN 20 YEARS AGO (QD)
     Route: 048
  7. MALEATE OF MIDAZOLAM [Concomitant]
     Indication: Insomnia
     Dosage: 1 TABLET IF SHE PRESENTS INSOMNIA
     Route: 048
  8. BETAHISTINE [Concomitant]
     Active Substance: BETAHISTINE
     Indication: Labyrinthitis
     Dosage: 1 TABLET IF SHE NEEDS
     Route: 048
  9. MALEATE OF ENALAPRIL [Concomitant]
     Indication: Hypertension
     Dosage: MORE THAN 20 YEARS AGO (QD)
     Route: 048

REACTIONS (34)
  - Blindness [Unknown]
  - Deafness [Not Recovered/Not Resolved]
  - Condition aggravated [Unknown]
  - Paraesthesia [Not Recovered/Not Resolved]
  - Flatulence [Not Recovered/Not Resolved]
  - Peripheral vascular disorder [Unknown]
  - Illness [Unknown]
  - Off label use [Unknown]
  - Oral pain [Unknown]
  - Nausea [Unknown]
  - Abdominal discomfort [Unknown]
  - Ageusia [Unknown]
  - Osteoporosis [Unknown]
  - Pollakiuria [Unknown]
  - Drug ineffective [Unknown]
  - Pain [Unknown]
  - Amnesia [Not Recovered/Not Resolved]
  - Disturbance in attention [Not Recovered/Not Resolved]
  - Loss of personal independence in daily activities [Not Recovered/Not Resolved]
  - Anxiety [Not Recovered/Not Resolved]
  - Headache [Not Recovered/Not Resolved]
  - Arthralgia [Not Recovered/Not Resolved]
  - Gait disturbance [Not Recovered/Not Resolved]
  - Gastrooesophageal reflux disease [Not Recovered/Not Resolved]
  - Kyphosis [Unknown]
  - Hyperhidrosis [Not Recovered/Not Resolved]
  - Hypoaesthesia [Not Recovered/Not Resolved]
  - Labyrinthitis [Not Recovered/Not Resolved]
  - Condition aggravated [Not Recovered/Not Resolved]
  - Feeling hot [Unknown]
  - Arthralgia [Not Recovered/Not Resolved]
  - Dizziness [Not Recovered/Not Resolved]
  - Insomnia [Unknown]
  - Purpura [Unknown]

NARRATIVE: CASE EVENT DATE: 20190101
